FAERS Safety Report 6087614-0 (Version None)
Quarter: 2009Q1

REPORT INFORMATION
  Report Type: 
  Country: None (occurrence: None)
  Receive Date: 20090223
  Receipt Date: 20090217
  Transmission Date: 20090719
  Serious: Yes (Other)
  Sender: FDA-Public Use
  Company Number: DE-JNJFOC-20090204184

PATIENT
  Age: 7 Year
  Sex: Male
  Weight: 24 kg

DRUGS (2)
  1. CONCERTA [Suspect]
     Indication: DRUG USE FOR UNKNOWN INDICATION
     Route: 048
  2. NON RETARD METHYLPHENIDATE [Concomitant]
     Dosage: IN THE MORNING
     Route: 065

REACTIONS (6)
  - EXTRAPYRAMIDAL DISORDER [None]
  - OROMANDIBULAR DYSTONIA [None]
  - TACHYCARDIA [None]
  - TACHYPNOEA [None]
  - TIC [None]
  - WRONG TECHNIQUE IN DRUG USAGE PROCESS [None]
